FAERS Safety Report 6631100-3 (Version None)
Quarter: 2010Q1

REPORT INFORMATION
  Report Type: 
  Country: None (occurrence: None)
  Receive Date: 20100309
  Receipt Date: 20100301
  Transmission Date: 20100710
  Serious: Yes (Other)
  Sender: FDA-Public Use
  Company Number: DSU-2010-00848

PATIENT
  Age: 50 Year
  Sex: Female
  Weight: 90.7194 kg

DRUGS (3)
  1. BENICAR [Suspect]
     Indication: HYPERTENSION
     Dates: start: 20040101
  2. LEXAPRO (ESCITALOPRAM OXALATE) (ESCITALOPRAM OXALATE) [Concomitant]
  3. PERCOCET (PARACETAMOL, OXYCODONE HYDROCHLORIDE) (PARACETAMOL, OXYCODON [Concomitant]

REACTIONS (4)
  - ANKLE FRACTURE [None]
  - FRACTURE DELAYED UNION [None]
  - GASTRIC DISORDER [None]
  - PRODUCT ODOUR ABNORMAL [None]
